FAERS Safety Report 4976133-8 (Version None)
Quarter: 2006Q2

REPORT INFORMATION
  Report Type: 
  Country: None (occurrence: None)
  Receive Date: 20060411
  Receipt Date: 20060330
  Transmission Date: 20061013
  Serious: Yes (Death)
  Sender: FDA-Public Use
  Company Number: MC200600212

PATIENT
  Age: 54 Year
  Sex: Male
  Weight: 220 kg

DRUGS (8)
  1. ANGIOMAX [Suspect]
     Dosage: 0.75 MG/KG. BOLUS, IV BOLUS
     Route: 040
     Dates: start: 20060317, end: 20060317
  2. PLAVIX [Concomitant]
  3. DIOVAN [Concomitant]
  4. CRESTOR/NET/(ROSUVASTATIN CALCIUM) [Concomitant]
  5. NIASPAN [Concomitant]
  6. METENIX 5 (METOLAZONE) [Concomitant]
  7. OMEGA 3 (FISH OIL) [Concomitant]
  8. ASPIRIN [Concomitant]

REACTIONS (4)
  - BLOOD PH INCREASED [None]
  - CARDIO-RESPIRATORY ARREST [None]
  - HYPOTENSION [None]
  - HYPOVENTILATION [None]
